FAERS Safety Report 6326899-X (Version None)
Quarter: 2009Q3

REPORT INFORMATION
  Report Type: 
  Country: None (occurrence: None)
  Receive Date: 20090825
  Receipt Date: 20090817
  Transmission Date: 20100115
  Serious: Yes (Other)
  Sender: FDA-Public Use
  Company Number: BR-JNJFOC-20090806624

PATIENT
  Age: 34 Year
  Sex: Female
  Weight: 62 kg

DRUGS (1)
  1. TOPAMAX [Suspect]
     Indication: MYOCLONIC EPILEPSY
     Dosage: 1 TABLET IN MORNING AND 1 TABLET AT NIGHT
     Route: 048

REACTIONS (9)
  - ALLERGY TO CHEMICALS [None]
  - BLOOD CHOLESTEROL INCREASED [None]
  - DERMATITIS ALLERGIC [None]
  - FOOD ALLERGY [None]
  - FORMICATION [None]
  - HYPOAESTHESIA [None]
  - LACTOSE INTOLERANCE [None]
  - MEDICATION ERROR [None]
  - MIGRAINE [None]
